FAERS Safety Report 15452380 (Version 1)
Quarter: 2018Q4

REPORT INFORMATION
  Report Type: Spontaneous
  Country: PE (occurrence: PE)
  Receive Date: 20181001
  Receipt Date: 20181001
  Transmission Date: 20190204
  Serious: Yes (Hospitalization, Other)
  Sender: FDA-Public Use
  Company Number: PE-AMGEN-PERSP2018133581

PATIENT
  Age: 72 Year
  Sex: Female

DRUGS (1)
  1. PROLIA [Suspect]
     Active Substance: DENOSUMAB
     Indication: OSTEOPOROSIS
     Dosage: 60 MG, CYCLICAL
     Route: 058
     Dates: start: 2015

REACTIONS (5)
  - Speech disorder [Unknown]
  - Post-traumatic neck syndrome [Unknown]
  - Nausea [Unknown]
  - Fall [Unknown]
  - Cellulitis [Unknown]

NARRATIVE: CASE EVENT DATE: 20180919
